FAERS Safety Report 11114770 (Version 4)
Quarter: 2015Q2

REPORT INFORMATION
  Report Type: Spontaneous
  Country: GB (occurrence: None)
  Receive Date: 20150513
  Receipt Date: 20150615
  Transmission Date: 20150821
  Serious: Yes (Disabling, Other)
  Sender: FDA-Public Use
  Company Number: 2015-11232

PATIENT
  Age: 57 Year
  Sex: Male

DRUGS (1)
  1. EYLEA [Suspect]
     Active Substance: AFLIBERCEPT
     Indication: DIABETIC RETINAL OEDEMA
     Route: 031
     Dates: start: 20150325, end: 20150325

REACTIONS (4)
  - Corneal disorder [None]
  - Keratopathy [None]
  - Vision blurred [None]
  - Keratitis interstitial [None]

NARRATIVE: CASE EVENT DATE: 201504
